FAERS Safety Report 6842367-0 (Version None)
Quarter: 2010Q3

REPORT INFORMATION
  Report Type: 
  Country: None (occurrence: None)
  Receive Date: 20100714
  Receipt Date: 20070726
  Transmission Date: 20110219
  Serious: No
  Sender: FDA-Public Use
  Company Number: US-PFIZER INC-2007063058

PATIENT
  Sex: Male
  Weight: 70.5 kg

DRUGS (4)
  1. CHANTIX [Suspect]
     Indication: SMOKING CESSATION THERAPY
     Dates: start: 20070721
  2. PLAVIX [Concomitant]
  3. ZOCOR [Concomitant]
  4. TOPROL-XL [Concomitant]

REACTIONS (1)
  - NAUSEA [None]
